FAERS Safety Report 20740952 (Version 3)
Quarter: 2022Q2

REPORT INFORMATION
  Report Type: Spontaneous
  Country: IT (occurrence: IT)
  Receive Date: 20220422
  Receipt Date: 20220608
  Transmission Date: 20220721
  Serious: Yes (Hospitalization)
  Sender: FDA-Public Use
  Company Number: None

PATIENT
  Age: 27 Year
  Sex: Male

DRUGS (3)
  1. ZYPADHERA [Suspect]
     Active Substance: OLANZAPINE PAMOATE
     Indication: Schizoaffective disorder
     Dosage: 300 MG, UNKNOWN
     Route: 030
  2. ZYPADHERA [Suspect]
     Active Substance: OLANZAPINE PAMOATE
     Indication: Schizoaffective disorder
     Dosage: 300 MG, UNKNOWN
     Route: 030
  3. ZYPADHERA [Suspect]
     Active Substance: OLANZAPINE PAMOATE
     Indication: Schizoaffective disorder
     Dosage: 300 MG, UNKNOWN
     Route: 030

REACTIONS (3)
  - Miosis [Recovered/Resolved]
  - Hypertonia [Recovered/Resolved]
  - Sopor [Recovered/Resolved]

NARRATIVE: CASE EVENT DATE: 20220409
